FAERS Safety Report 4656536-1 (Version None)
Quarter: 2005Q2

REPORT INFORMATION
  Report Type: 
  Country: None (occurrence: None)
  Receive Date: 20050509
  Receipt Date: 20050202
  Transmission Date: 20051028
  Serious: Yes (Other)
  Sender: FDA-Public Use
  Company Number: PHNU2005DE00812

PATIENT
  Sex: Male

DRUGS (4)
  1. LAMISIL [Suspect]
     Indication: TINEA PEDIS
     Dosage: UNK, UNK
     Dates: start: 20041201
  2. METOPROLOL TARTRATE [Concomitant]
     Dosage: 25 MG/DAY
  3. TAMBOCOR [Concomitant]
     Dosage: 50 MG, BID
  4. ASPIRIN [Concomitant]
     Dosage: 100 MG/DAY

REACTIONS (1)
  - ATRIAL FIBRILLATION [None]
